FAERS Safety Report 8845354 (Version 1)
Quarter: 2012Q4

REPORT INFORMATION
  Report Type: Spontaneous
  Country: ES (occurrence: None)
  Receive Date: 20121015
  Receipt Date: 20121015
  Transmission Date: 20130627
  Serious: Yes (Hospitalization)
  Sender: FDA-Public Use
  Company Number: ES-INDICUS PHARMA-000030

PATIENT
  Age: 76 Year
  Sex: Male

DRUGS (3)
  1. METFORMIN HYDROCHLORIDE [Suspect]
     Indication: TYPE 2 DIABETES MELLITUS
     Dosage: 850.00-Mg-24.0Hou
  2. VILDAGLIPTIN [Concomitant]
  3. IBUPROFEN(IBUPROFEN) [Concomitant]

REACTIONS (3)
  - Lactic acidosis [None]
  - Renal impairment [None]
  - Respiratory failure [None]
